FAERS Safety Report 6260006-7 (Version None)
Quarter: 2009Q3

REPORT INFORMATION
  Report Type: 
  Country: None (occurrence: None)
  Receive Date: 20090708
  Receipt Date: 20090521
  Transmission Date: 20100115
  Serious: Yes (Hospitalization, Disabling, Other)
  Sender: FDA-Public Use
  Company Number: US-PURDUE-USA-2009-0038738

PATIENT
  Sex: Female
  Weight: 58.957 kg

DRUGS (6)
  1. OXYCONTIN [Suspect]
     Indication: PAIN
     Dosage: 80 MG, 5/DAY
     Dates: start: 20000910, end: 20020918
  2. EFFEXOR [Suspect]
     Dosage: 100 MG, DAILY
  3. VIOXX [Suspect]
  4. CELEBREX [Suspect]
     Dosage: 200 MG, DAILY
  5. PERCOCET [Suspect]
     Dosage: 10 MG, QID
  6. XANAX [Suspect]
     Dosage: 1 UNK, UNK

REACTIONS (14)
  - AMNESIA [None]
  - ANXIETY [None]
  - ASTHENIA [None]
  - CHEST PAIN [None]
  - COMA [None]
  - DEPRESSION [None]
  - DIARRHOEA [None]
  - DISABILITY [None]
  - DRUG DEPENDENCE [None]
  - DRUG WITHDRAWAL SYNDROME [None]
  - LETHARGY [None]
  - NAUSEA [None]
  - OVERDOSE [None]
  - VOMITING [None]
